FAERS Safety Report 11287359 (Version 1)
Quarter: 2015Q3

REPORT INFORMATION
  Report Type: Spontaneous
  Country: US (occurrence: US)
  Receive Date: 20150721
  Receipt Date: 20150721
  Transmission Date: 20151125
  Serious: No
  Sender: FDA-Public Use
  Company Number: US-JNJFOC-20150622835

PATIENT
  Age: 35 Year
  Sex: Female
  Weight: 66.23 kg

DRUGS (2)
  1. SIMPONI [Suspect]
     Active Substance: GOLIMUMAB
     Indication: ANKYLOSING SPONDYLITIS
     Route: 058
     Dates: start: 20150404
  2. CELECOXIB. [Concomitant]
     Active Substance: CELECOXIB
     Indication: PAIN
     Route: 048
     Dates: start: 2014

REACTIONS (5)
  - Accidental exposure to product [Recovered/Resolved]
  - Pain [Not Recovered/Not Resolved]
  - Device malfunction [Unknown]
  - Drug dose omission [Not Recovered/Not Resolved]
  - Fear [Unknown]

NARRATIVE: CASE EVENT DATE: 20150628
